FAERS Safety Report 19670886 (Version 2)
Quarter: 2021Q3

REPORT INFORMATION
  Report Type: Spontaneous
  Country: BR (occurrence: BR)
  Receive Date: 20210806
  Receipt Date: 20210824
  Transmission Date: 20211014
  Serious: Yes (Other)
  Sender: FDA-Public Use
  Company Number: NVSC2021BR173938

PATIENT
  Sex: Female
  Weight: 70 kg

DRUGS (2)
  1. RYDAPT [Suspect]
     Active Substance: MIDOSTAURIN
     Indication: ACUTE MYELOID LEUKAEMIA
     Dosage: UNK
     Route: 048
     Dates: start: 20210113, end: 20210628
  2. POSACONAZOLE [Concomitant]
     Active Substance: POSACONAZOLE
     Indication: PROPHYLAXIS
     Dosage: 5 ML, Q8H
     Route: 048
     Dates: start: 20210715, end: 20210803

REACTIONS (7)
  - Ventricular dysfunction [Unknown]
  - COVID-19 [Unknown]
  - Pleural effusion [Unknown]
  - Pneumonitis [Unknown]
  - Lung opacity [Unknown]
  - Aspergillus infection [Unknown]
  - Pulmonary hypertension [Unknown]
